FAERS Safety Report 10711096 (Version 7)
Quarter: 2015Q2

REPORT INFORMATION
  Report Type: Spontaneous
  Country: US (occurrence: US)
  Receive Date: 20150114
  Receipt Date: 20150618
  Transmission Date: 20150821
  Serious: Yes (Disabling)
  Sender: FDA-Public Use
  Company Number: US-009507513-1204USA04478

PATIENT
  Sex: Male
  Weight: 103.86 kg

DRUGS (1)
  1. PROPECIA [Suspect]
     Active Substance: FINASTERIDE
     Indication: ALOPECIA
     Dosage: 1 MG, UNK
     Route: 048
     Dates: start: 20061004, end: 20061201

REACTIONS (27)
  - Skin swelling [Unknown]
  - Prostatomegaly [Unknown]
  - Erectile dysfunction [Not Recovered/Not Resolved]
  - Orgasmic sensation decreased [Not Recovered/Not Resolved]
  - Dysthymic disorder [Unknown]
  - Dysthymic disorder [Unknown]
  - Adverse event [Unknown]
  - Anxiety [Not Recovered/Not Resolved]
  - Musculoskeletal chest pain [Unknown]
  - Back pain [Unknown]
  - Sexual dysfunction [Not Recovered/Not Resolved]
  - Genital hypoaesthesia [Unknown]
  - Scar [Unknown]
  - Ejaculation failure [Not Recovered/Not Resolved]
  - Libido decreased [Not Recovered/Not Resolved]
  - Seminal vesicular cyst [Unknown]
  - Semen analysis abnormal [Not Recovered/Not Resolved]
  - Drug ineffective [Unknown]
  - Depression [Not Recovered/Not Resolved]
  - Neuropathy peripheral [Unknown]
  - Chlamydial infection [Unknown]
  - Male orgasmic disorder [Unknown]
  - Cognitive disorder [Not Recovered/Not Resolved]
  - Ejaculation disorder [Not Recovered/Not Resolved]
  - Anhedonia [Unknown]
  - Hair colour changes [Not Recovered/Not Resolved]
  - Sexual dysfunction [Unknown]

NARRATIVE: CASE EVENT DATE: 2006
